FAERS Safety Report 5161347-7 (Version None)
Quarter: 2006Q4

REPORT INFORMATION
  Report Type: 
  Country: None (occurrence: None)
  Receive Date: 20061130
  Receipt Date: 20061116
  Transmission Date: 20070319
  Serious: Yes (Other)
  Sender: FDA-Public Use
  Company Number: SE-ELI_LILLY_AND_COMPANY-SE200611003582

PATIENT
  Sex: Male
  Weight: 29 kg

DRUGS (3)
  1. STRATTERA [Suspect]
     Indication: ATTENTION DEFICIT/HYPERACTIVITY DISORDER
     Dosage: 10 MG, DAILY (1/D)
     Dates: start: 20061001
  2. STRATTERA [Suspect]
     Dosage: 18 MG, DAILY (1/D)
     Dates: start: 20061101, end: 20061117
  3. CONCERTA [Concomitant]
     Indication: ATTENTION DEFICIT/HYPERACTIVITY DISORDER
     Dosage: 18 MG, DAILY (1/D)

REACTIONS (3)
  - AGGRESSION [None]
  - ANTISOCIAL BEHAVIOUR [None]
  - PSYCHOMOTOR HYPERACTIVITY [None]
